FAERS Safety Report 25531600 (Version 1)
Quarter: 2025Q3

REPORT INFORMATION
  Report Type: Spontaneous
  Country: IN (occurrence: IN)
  Receive Date: 20250709
  Receipt Date: 20250709
  Transmission Date: 20251021
  Serious: Yes (Other)
  Sender: AMGEN
  Company Number: IN-KYOWAKIRIN-2025KK012852

PATIENT

DRUGS (4)
  1. NEUPOGEN [Suspect]
     Active Substance: FILGRASTIM
     Indication: Hepatitis alcoholic
     Dosage: 5 UG/KG SUBCUTANEOUSLY TO A MAXIMUM OF 300 UG PER DAY FOR 7 DAYS
     Route: 058
  2. NEUPOGEN [Suspect]
     Active Substance: FILGRASTIM
     Route: 058
  3. PEGFILGRASTIM [Suspect]
     Active Substance: PEGFILGRASTIM
     Indication: Hepatitis alcoholic
     Dosage: 5 UG/KG SUBCUTANEOUSLY TO A MAXIMUM OF 300 UG PER DAY FOR 7 DAYS
     Route: 058
  4. PEGFILGRASTIM [Suspect]
     Active Substance: PEGFILGRASTIM
     Route: 058

REACTIONS (3)
  - Adverse reaction [Unknown]
  - Leukocytosis [Unknown]
  - Pyrexia [Unknown]
